FAERS Safety Report 5369020-7 (Version None)
Quarter: 2007Q2

REPORT INFORMATION
  Report Type: 
  Country: None (occurrence: None)
  Receive Date: 20070625
  Receipt Date: 20061204
  Transmission Date: 20071010
  Serious: No
  Sender: FDA-Public Use
  Company Number: US-ASTRAZENECA-2006UW26972

PATIENT
  Age: 83 Year
  Sex: Female

DRUGS (7)
  1. CRESTOR [Suspect]
     Route: 048
  2. CRESTOR [Suspect]
     Route: 048
  3. LASIX [Concomitant]
  4. PLAVIX [Concomitant]
  5. IMDUR [Concomitant]
  6. LOPRESSOR [Concomitant]
  7. LISINOPRIL [Concomitant]
     Route: 048

REACTIONS (2)
  - HEADACHE [None]
  - URINARY INCONTINENCE [None]
